FAERS Safety Report 9606879 (Version 1)
Quarter: 2013Q4

REPORT INFORMATION
  Report Type: Spontaneous
  Country: US (occurrence: US)
  Receive Date: 20131008
  Receipt Date: 20131008
  Transmission Date: 20140711
  Serious: No
  Sender: FDA-Public Use
  Company Number: US-AMGEN-USASP2013062116

PATIENT
  Age: 71 Year
  Sex: Female

DRUGS (7)
  1. PROLIA [Suspect]
     Indication: OSTEOPOROSIS POSTMENOPAUSAL
     Dosage: UNK
     Route: 065
  2. METFORMIN [Concomitant]
     Dosage: UNK
     Route: 065
  3. JANUVIA [Concomitant]
     Dosage: UNK
     Route: 065
  4. LOTREL [Concomitant]
     Dosage: UNK
     Route: 065
  5. MULTIVITAMIN                       /00097801/ [Concomitant]
     Dosage: UNK
     Route: 065
  6. SYNTHROID [Concomitant]
     Dosage: 125 UNK, UNK
     Route: 065
  7. VITAMIN D                          /00107901/ [Concomitant]
     Dosage: 50000 IU, QWK
     Route: 065

REACTIONS (3)
  - Discomfort [Unknown]
  - Vitamin D decreased [Unknown]
  - Bone pain [Recovered/Resolved]
